FAERS Safety Report 4438688-1 (Version None)
Quarter: 2004Q3

REPORT INFORMATION
  Report Type: 
  Country: None (occurrence: None)
  Receive Date: 20040830
  Receipt Date: 20040818
  Transmission Date: 20050211
  Serious: Yes (Disabling, Other)
  Sender: FDA-Public Use
  Company Number: 2004058034

PATIENT
  Sex: Male

DRUGS (1)
  1. NEURONTIN [Suspect]
     Indication: BIPOLAR DISORDER

REACTIONS (7)
  - DEFORMITY [None]
  - DRUG INEFFECTIVE [None]
  - ILL-DEFINED DISORDER [None]
  - INJURY [None]
  - OFF LABEL USE [None]
  - PAIN [None]
  - SUICIDE ATTEMPT [None]
